FAERS Safety Report 5095738-X (Version None)
Quarter: 2006Q3

REPORT INFORMATION
  Report Type: 
  Country: None (occurrence: None)
  Receive Date: 20060731
  Receipt Date: 20060427
  Transmission Date: 20061208
  Serious: No
  Sender: FDA-Public Use
  Company Number: 2006PV012889

PATIENT
  Age: 53 Year
  Sex: Female
  Weight: 80.7403 kg

DRUGS (3)
  1. BYETTA [Suspect]
     Indication: DIABETES MELLITUS
     Dosage: SEE IMAGE
     Route: 058
     Dates: start: 20060301, end: 20060409
  2. BYETTA [Suspect]
     Indication: DIABETES MELLITUS
     Dosage: SEE IMAGE
     Route: 058
     Dates: start: 20060413
  3. METFORMIN [Concomitant]

REACTIONS (8)
  - ASTHENIA [None]
  - BLOOD GLUCOSE DECREASED [None]
  - CONSTIPATION [None]
  - DIARRHOEA [None]
  - NAUSEA [None]
  - PERIPHERAL COLDNESS [None]
  - TREMOR [None]
  - VOMITING [None]
